FAERS Safety Report 6728833-7 (Version None)
Quarter: 2010Q2

REPORT INFORMATION
  Report Type: 
  Country: None (occurrence: None)
  Receive Date: 20100517
  Receipt Date: 20100222
  Transmission Date: 20101027
  Serious: No
  Sender: FDA-Public Use
  Company Number: US-ABBOTT-10P-163-0628593-00

PATIENT
  Sex: Male

DRUGS (5)
  1. SIMCOR [Suspect]
     Indication: DRUG USE FOR UNKNOWN INDICATION
     Dates: start: 20100220
  2. DILANTIN [Concomitant]
     Indication: PETIT MAL EPILEPSY
     Dates: start: 20050101
  3. ASPIRIN [Concomitant]
     Indication: DRUG USE FOR UNKNOWN INDICATION
  4. METFORMIN HYDROCHLORIDE [Concomitant]
     Indication: DIABETES MELLITUS
  5. UNKNOWN KIDNEY MEDICATION [Concomitant]
     Indication: RENAL FAILURE

REACTIONS (1)
  - DISTURBANCE IN ATTENTION [None]
